FAERS Safety Report 7551022-3 (Version None)
Quarter: 2011Q2

REPORT INFORMATION
  Report Type: 
  Country: None (occurrence: None)
  Receive Date: 20110616
  Receipt Date: 20110606
  Transmission Date: 20111010
  Serious: Yes (Hospitalization)
  Sender: FDA-Public Use
  Company Number: CA-ELI_LILLY_AND_COMPANY-CA201105000190

PATIENT
  Age: 62 Year
  Sex: Female

DRUGS (17)
  1. TYLENOL                                 /SCH/ [Concomitant]
  2. ADVAIR DISKUS 100/50 [Concomitant]
  3. VITAMIN D [Concomitant]
  4. FOLIC ACID [Concomitant]
  5. ASCORBIC ACID [Concomitant]
  6. MULTI-VITAMIN [Concomitant]
  7. OXYBUTYNIN [Concomitant]
  8. PANTOLOC                           /01263202/ [Concomitant]
  9. OXAZEPAM [Concomitant]
  10. PREDNISONE [Concomitant]
  11. GABAPENTIN [Concomitant]
  12. HYDROMORPHONE HCL [Concomitant]
  13. GRAVOL TAB [Concomitant]
  14. WARFARIN SODIUM [Concomitant]
  15. FORTEO [Suspect]
     Indication: OSTEOPOROSIS
     Dosage: 20 UG, QD
     Route: 058
     Dates: start: 20091203
  16. METHOTREXATE [Concomitant]
  17. LASIX [Concomitant]

REACTIONS (9)
  - WOUND DRAINAGE [None]
  - LYMPHORRHOEA [None]
  - ANKLE FRACTURE [None]
  - MYALGIA [None]
  - WOUND [None]
  - BLISTER [None]
  - OEDEMA PERIPHERAL [None]
  - OPEN WOUND [None]
  - INFECTION [None]
